FAERS Safety Report 7640353-4 (Version None)
Quarter: 2011Q3

REPORT INFORMATION
  Report Type: 
  Country: None (occurrence: None)
  Receive Date: 20110728
  Receipt Date: 20081120
  Transmission Date: 20111222
  Serious: Yes (Other)
  Sender: FDA-Public Use
  Company Number: US-BAYER-200835751NA

PATIENT
  Age: 46 Year
  Sex: Female
  Weight: 81.2 kg

DRUGS (16)
  1. FLEXERIL [Concomitant]
  2. NORVASC [Concomitant]
  3. HYDROCODONE BITARTRATE AND ACETAMINOPHEN [Concomitant]
  4. BENTYL [Concomitant]
  5. LORTAB [Concomitant]
  6. PROHANCE [Suspect]
     Indication: NUCLEAR MAGNETIC RESONANCE IMAGING BRAIN
     Dosage: UNK
     Dates: start: 20050118
  7. NAPROXEN SODIUM [Concomitant]
  8. VITAMIN TAB [Concomitant]
  9. ACETAMINOPHEN [Concomitant]
  10. LOTRIMIN [Concomitant]
  11. NITROGLYCERIN [Concomitant]
  12. MAGNEVIST [Suspect]
     Indication: NUCLEAR MAGNETIC RESONANCE IMAGING BRAIN
     Dates: start: 20050118, end: 20050118
  13. LOTRISONE [Concomitant]
  14. DARVOCET-N 50 [Concomitant]
  15. IRON SUPPLEMENT [Concomitant]
  16. ATENOLOL [Concomitant]

REACTIONS (14)
  - SKIN INDURATION [None]
  - ARTHRALGIA [None]
  - JOINT SWELLING [None]
  - ANXIETY [None]
  - GAIT DISTURBANCE [None]
  - ALOPECIA [None]
  - PAIN IN EXTREMITY [None]
  - SKIN DISCOLOURATION [None]
  - PAIN [None]
  - EMOTIONAL DISORDER [None]
  - NEPHROGENIC SYSTEMIC FIBROSIS [None]
  - SCAR [None]
  - MUSCULOSKELETAL STIFFNESS [None]
  - ANHEDONIA [None]
